FAERS Safety Report 14183855 (Version 1)
Quarter: 2017Q4

REPORT INFORMATION
  Report Type: Report from Study
  Country: None (occurrence: AR)
  Receive Date: 20171113
  Receipt Date: 20171113
  Transmission Date: 20180321
  Serious: Yes (Death)
  Sender: FDA-Public Use
  Company Number: AR-ABBVIE-17S-007-2161436-00

PATIENT
  Age: 59 Year
  Sex: Male

DRUGS (1)
  1. ZEMPLAR [Suspect]
     Active Substance: PARICALCITOL
     Indication: HYPERPARATHYROIDISM SECONDARY
     Route: 042
     Dates: start: 20160604

REACTIONS (4)
  - Hepatic failure [Fatal]
  - Infected fistula [Fatal]
  - Respiratory arrest [Fatal]
  - Infection [Fatal]

NARRATIVE: CASE EVENT DATE: 20171102
